FAERS Safety Report 12195243 (Version 1)
Quarter: 2016Q1

REPORT INFORMATION
  Report Type: Spontaneous
  Country: US (occurrence: None)
  Receive Date: 20160318
  Receipt Date: 20160318
  Transmission Date: 20160526
  Serious: No
  Sender: FDA-Public Use
  Company Number: None

PATIENT
  Age: 32 Year
  Sex: Female

DRUGS (1)
  1. BOTOX [Suspect]
     Active Substance: ONABOTULINUMTOXINA
     Dosage: 100UNITS IM IN PHYSICIAN^S OFFICE
     Route: 030
     Dates: start: 20151220

REACTIONS (2)
  - Headache [None]
  - Head banging [None]

NARRATIVE: CASE EVENT DATE: 20160317
